FAERS Safety Report 5275651-5 (Version None)
Quarter: 2007Q1

REPORT INFORMATION
  Report Type: 
  Country: None (occurrence: None)
  Receive Date: 20061213
  Receipt Date: 20040511
  Transmission Date: 20070707
  Serious: No
  Sender: FDA-Public Use
  Company Number: 2004UW08444

PATIENT
  Age: 15 Year
  Sex: Female

DRUGS (3)
  1. SEROQUEL [Suspect]
     Dosage: 600 MG  DAILY  PO
     Route: 048
     Dates: start: 20040201
  2. LEXAPRO [Concomitant]
  3. CLONIDINE [Concomitant]

REACTIONS (1)
  - CONVULSION [None]
